FAERS Safety Report 24271779 (Version 1)
Quarter: 2024Q3

REPORT INFORMATION
  Report Type: Other
  Country: CN (occurrence: CN)
  Receive Date: 20240902
  Receipt Date: 20240902
  Transmission Date: 20241016
  Serious: Yes (Death, Hospitalization)
  Sender: BIONPHARMA
  Company Number: CN-Bion-013750

PATIENT
  Age: 53 Year
  Sex: Male

DRUGS (2)
  1. DICLOFENAC POTASSIUM [Suspect]
     Active Substance: DICLOFENAC POTASSIUM
     Indication: Abdominal pain
  2. LIDOCAINE [Concomitant]
     Active Substance: LIDOCAINE
     Indication: Abdominal pain
     Dosage: LIDOCAINE INJECTION 2ML
     Route: 030

REACTIONS (1)
  - Hypoglycaemia [Fatal]
